FAERS Safety Report 18341170 (Version 1)
Quarter: 2020Q4

REPORT INFORMATION
  Report Type: Spontaneous
  Country: DE (occurrence: DE)
  Receive Date: 20201003
  Receipt Date: 20201003
  Transmission Date: 20210113
  Serious: Yes (Life-Threatening, Hospitalization)
  Sender: FDA-Public Use
  Company Number: DE-TEVA-2020-DE-1833634

PATIENT
  Age: 58 Year
  Sex: Female

DRUGS (13)
  1. TIZANIDINE. [Suspect]
     Active Substance: TIZANIDINE
     Dosage: 2 MG, 1-0-1-0, UNIT DOSE: 4 MG
     Route: 048
  2. LEVOTHYROXIN-NATRIUM 75 MIKROGRAMM TABLETTEN [Concomitant]
     Dosage: 75 MICROGRAM DAILY; 1-0-0-0
     Route: 048
  3. PREGABALIN. [Concomitant]
     Active Substance: PREGABALIN
     Dosage: 50 MG, 1-1-1-0, UNIT DOSE: 150 MG
     Route: 048
  4. VALSARTAN. [Concomitant]
     Active Substance: VALSARTAN
     Dosage: 320 MILLIGRAM DAILY; 1-0-0-0
     Route: 048
  5. TORASEMIDE [Suspect]
     Active Substance: TORSEMIDE
     Dosage: 10 MG, 2-1-0-0, UNIT DOSE: 30 MG
     Route: 048
  6. SPIRONOLACTONE. [Suspect]
     Active Substance: SPIRONOLACTONE
     Dosage: 25 MILLIGRAM DAILY; 1-0-0-0
     Route: 048
  7. PROGESTERONE. [Concomitant]
     Active Substance: PROGESTERONE
     Dosage: 100 MILLIGRAM DAILY; 0-0-1-0
     Route: 048
  8. TAPENTADOL [Suspect]
     Active Substance: TAPENTADOL
     Dosage: 50 MG, 1-0-1-0, UNIT DOSE: 100 MG
     Route: 048
  9. METOPROLOL. [Concomitant]
     Active Substance: METOPROLOL
     Dosage: 47.5 MG, 1-0-1-0, UNIT DOSE: 95 MG
     Route: 048
  10. ALLOPURINOL. [Concomitant]
     Active Substance: ALLOPURINOL
     Dosage: 300 MILLIGRAM DAILY; 1-0-0-0
     Route: 048
  11. DOXEPIN [Concomitant]
     Active Substance: DOXEPIN
     Dosage: 30 MILLIGRAM DAILY; 1-0-0-0
     Route: 048
  12. ACETYLSALICYLSAEURE [Concomitant]
     Active Substance: ASPIRIN
     Dosage: 100 MILLIGRAM DAILY; 1-0-0-0
     Route: 048
  13. ATORVASTATIN [Concomitant]
     Active Substance: ATORVASTATIN
     Dosage: 20 MILLIGRAM DAILY; 0-0-1-0
     Route: 048

REACTIONS (9)
  - Thirst [Unknown]
  - General physical health deterioration [Unknown]
  - Hypotension [Unknown]
  - Diarrhoea [Unknown]
  - Depressed level of consciousness [Unknown]
  - Condition aggravated [Unknown]
  - Disorientation [Unknown]
  - Dehydration [Unknown]
  - Electrolyte imbalance [Unknown]
